FAERS Safety Report 8513852-0 (Version None)
Quarter: 2012Q3

REPORT INFORMATION
  Report Type: 
  Country: None (occurrence: None)
  Receive Date: 20120705
  Receipt Date: 20120627
  Transmission Date: 20120928
  Serious: Yes (Other)
  Sender: FDA-Public Use
  Company Number: 2012SP036339

PATIENT
  Sex: Female

DRUGS (2)
  1. PEG-INTRON [Suspect]
     Indication: HEPATITIS C
     Dates: start: 20120606
  2. RIBAVIRIN [Suspect]
     Indication: HEPATITIS C
     Dates: start: 20120606

REACTIONS (5)
  - BLOOD GLUCOSE INCREASED [None]
  - PYREXIA [None]
  - INSOMNIA [None]
  - FATIGUE [None]
  - DIZZINESS [None]
